FAERS Safety Report 8465520 (Version 3)
Quarter: 2012Q4

REPORT INFORMATION
  Report Type: Report from Study
  Country: US (occurrence: US)
  Receive Date: 20120319
  Receipt Date: 20121101
  Transmission Date: 20130627
  Serious: Yes (Hospitalization)
  Sender: FDA-Public Use
  Company Number: US-GLAXOSMITHKLINE-A0932399A

PATIENT
  Age: 47 Year
  Sex: Male
  Weight: 98.6 kg

DRUGS (1)
  1. AVANDIA [Suspect]
     Indication: DIABETES MELLITUS
     Dosage: 4MG Twice per day
     Route: 048
     Dates: start: 2001, end: 2007

REACTIONS (3)
  - Coronary artery disease [Not Recovered/Not Resolved]
  - Acute coronary syndrome [Unknown]
  - Angina unstable [Unknown]
